FAERS Safety Report 9117277 (Version 1)
Quarter: 2013Q1

REPORT INFORMATION
  Report Type: Spontaneous
  Country: US (occurrence: US)
  Receive Date: 20130225
  Receipt Date: 20130225
  Transmission Date: 20140127
  Serious: Yes (Hospitalization)
  Sender: FDA-Public Use
  Company Number: US-JNJFOC-20130212469

PATIENT
  Age: 65 Year
  Sex: Female
  Weight: 91.6 kg

DRUGS (14)
  1. XARELTO [Suspect]
     Indication: THROMBOSIS PROPHYLAXIS
     Route: 048
     Dates: start: 20120913, end: 20120916
  2. TRAMADOL [Concomitant]
     Indication: PAIN
     Dosage: AS NECESSARY
     Route: 065
     Dates: start: 20120912, end: 20120916
  3. TYLENOL [Concomitant]
     Indication: PAIN
     Route: 065
     Dates: start: 20120912, end: 20120916
  4. BENADRYL [Concomitant]
     Indication: PRURITUS
     Dosage: AS NECESSARY
     Route: 065
     Dates: start: 20120912, end: 20120916
  5. DULCOLAX [Concomitant]
     Indication: CONSTIPATION
     Route: 054
     Dates: start: 20120913, end: 20120915
  6. COLACE [Concomitant]
     Indication: CONSTIPATION
     Route: 065
     Dates: start: 20120912, end: 20120916
  7. NEURONTIN [Concomitant]
     Indication: PAIN
     Route: 065
     Dates: start: 20120912, end: 20120916
  8. MUCINEX [Concomitant]
     Indication: RESPIRATORY TRACT CONGESTION
     Route: 065
     Dates: start: 20120914, end: 20120916
  9. DUONEB [Concomitant]
     Indication: RESPIRATORY DISORDER
     Route: 065
     Dates: start: 20120914, end: 20120916
  10. TORADOL [Concomitant]
     Indication: PAIN
     Dosage: AS NECESSARY
     Route: 042
     Dates: start: 20120912, end: 20120914
  11. LACTATED RINGERS SOLUTION [Concomitant]
     Indication: FLUID RETENTION
     Dosage: 125 ML/HR CONTINUOUS
     Route: 042
     Dates: start: 20120912, end: 20120914
  12. METOCLOPRAMIDE [Concomitant]
     Indication: NAUSEA
     Dosage: AS NECESSARY
     Route: 042
     Dates: start: 20120914, end: 20120916
  13. CEFAZOLIN [Concomitant]
     Indication: BACTERIAL INFECTION
     Route: 042
     Dates: start: 20120912, end: 20120913
  14. SENNA [Concomitant]
     Indication: CONSTIPATION
     Dosage: DURING NIGHT
     Route: 048
     Dates: start: 20120912, end: 20120916

REACTIONS (2)
  - Pulmonary embolism [Recovered/Resolved]
  - Drug ineffective [Unknown]
